FAERS Safety Report 11377824 (Version 1)
Quarter: 2015Q3

REPORT INFORMATION
  Report Type: Spontaneous
  Country: US (occurrence: US)
  Receive Date: 20150811
  Receipt Date: 20150811
  Transmission Date: 20151125
  Serious: No
  Sender: FDA-Public Use
  Company Number: US-ELI_LILLY_AND_COMPANY-US200909003921

PATIENT
  Sex: Male

DRUGS (4)
  1. HUMULIN R [Suspect]
     Active Substance: INSULIN HUMAN
     Dosage: 18 U, EACH EVENING
  2. HUMULIN N [Suspect]
     Active Substance: INSULIN HUMAN
     Dosage: 16 U, UNKNOWN
  3. HUMULIN N [Suspect]
     Active Substance: INSULIN HUMAN
     Dosage: 12 U, EACH EVENING
  4. LANTUS [Concomitant]
     Active Substance: INSULIN GLARGINE
     Dosage: UNK, EACH MORNING

REACTIONS (3)
  - Blood glucose decreased [Recovered/Resolved]
  - Unevaluable event [Recovered/Resolved]
  - Blood glucose increased [Recovered/Resolved]
